FAERS Safety Report 7541311-0 (Version None)
Quarter: 2011Q2

REPORT INFORMATION
  Report Type: 
  Country: None (occurrence: None)
  Receive Date: 20110611
  Receipt Date: 20110602
  Transmission Date: 20111010
  Serious: Yes (Hospitalization)
  Sender: FDA-Public Use
  Company Number: US-AMGEN-USASP2011024143

PATIENT
  Sex: Female

DRUGS (1)
  1. ENBREL [Suspect]
     Indication: RHEUMATOID ARTHRITIS
     Dosage: 25 MG, 6 TIMES/WK
     Dates: start: 20030120

REACTIONS (6)
  - STAPHYLOCOCCAL INFECTION [None]
  - HUMERUS FRACTURE [None]
  - SKIN ULCER [None]
  - HAND DEFORMITY [None]
  - HIP ARTHROPLASTY [None]
  - FALL [None]
